FAERS Safety Report 8972883 (Version 1)
Quarter: 2012Q4

REPORT INFORMATION
  Report Type: Spontaneous
  Country: US (occurrence: None)
  Receive Date: 20121210
  Receipt Date: 20121210
  Transmission Date: 20130627
  Serious: Yes (Life-Threatening, Hospitalization)
  Sender: FDA-Public Use
  Company Number: AG-2012-1911

PATIENT
  Age: 68 Year
  Sex: Male
  Weight: 77 kg

DRUGS (5)
  1. CHLORAMBUCIL [Suspect]
     Indication: CHRONIC LYMPHOCYTIC LEUKAEMIA
     Dosage: temporarily interrupted
     Dates: start: 20120926
  2. CHLORAMBUCIL [Suspect]
     Indication: CHRONIC LYMPHOCYTIC LEUKAEMIA
  3. CHLORAMBUCIL [Suspect]
     Indication: CHRONIC LYMPHOCYTIC LEUKAEMIA
     Dates: start: 20120829, end: 20121009
  4. DILACOR (DILTIAZEM) [Concomitant]
  5. LASIX (FUROSEMIDE) [Concomitant]

REACTIONS (6)
  - Neutropenia [None]
  - Anaemia [None]
  - Thrombocytopenia [None]
  - Dyspnoea [None]
  - Tachycardia [None]
  - Hyperhidrosis [None]
